FAERS Safety Report 8338984-1 (Version None)
Quarter: 2012Q2

REPORT INFORMATION
  Report Type: 
  Country: None (occurrence: None)
  Receive Date: 20120507
  Receipt Date: 20120501
  Transmission Date: 20120825
  Serious: No
  Sender: FDA-Public Use
  Company Number: US-BAYER-2012-043267

PATIENT
  Age: 67 Year
  Sex: Female
  Weight: 107 kg

DRUGS (13)
  1. VITAMIN C [Concomitant]
  2. ALKA-SELTZER ORIGINAL [Suspect]
     Dosage: 2 UNITS USED OTHER FREQUENCY
     Route: 048
  3. NAPROXEN SODIUM [Suspect]
     Dosage: 2 U, PRN
     Route: 048
     Dates: start: 20110101, end: 20110101
  4. GINKOBA [Concomitant]
  5. CENTRUM [Concomitant]
  6. GINSANA [Concomitant]
  7. LISINOPRIL [Concomitant]
  8. LEVOTHYROXINE SODIUM [Concomitant]
  9. FUROSEMIDE [Concomitant]
  10. ICAPS [Concomitant]
  11. VITAMIN B COMPLEX CAP [Concomitant]
  12. CLARITIN-D [Concomitant]
  13. MULTI-VITAMIN [Concomitant]

REACTIONS (3)
  - VOMITING [None]
  - DRUG EFFECT DECREASED [None]
  - NO ADVERSE EVENT [None]
